FAERS Safety Report 14926358 (Version 2)
Quarter: 2018Q4

REPORT INFORMATION
  Report Type: Spontaneous
  Country: IT (occurrence: IT)
  Receive Date: 20180523
  Receipt Date: 20181201
  Transmission Date: 20190204
  Serious: Yes (Hospitalization)
  Sender: FDA-Public Use
  Company Number: IT-TEVA-2018-IT-894849

PATIENT
  Age: 68 Year
  Sex: Male

DRUGS (9)
  1. ATENOLOL. [Concomitant]
     Active Substance: ATENOLOL
     Dosage: 100 MILLIGRAM DAILY;
     Route: 048
     Dates: start: 20170101
  2. DEPAKIN 500 MG GRANULATO A RILASCIO MODIFICATO [Concomitant]
     Dosage: 500 MILLIGRAM DAILY;
     Route: 048
     Dates: start: 20170701
  3. ACTIQ [Suspect]
     Active Substance: FENTANYL CITRATE
     Indication: HEADACHE
     Dosage: 2 DOSAGE FORMS DAILY;
     Route: 048
     Dates: start: 20170123
  4. MINIAS [Suspect]
     Active Substance: LORMETAZEPAM
     Indication: ANXIETY
     Dosage: 20 ML DAILY;
     Route: 048
     Dates: start: 20170123
  5. REMERON [Concomitant]
     Active Substance: MIRTAZAPINE
     Dosage: 45 MILLIGRAM DAILY;
     Route: 048
     Dates: start: 20170101
  6. SERTRALINE [Concomitant]
     Active Substance: SERTRALINE HYDROCHLORIDE
     Indication: DEPRESSION
     Dosage: 50 MILLIGRAM DAILY;
     Route: 048
     Dates: start: 20170101
  7. XANAX [Concomitant]
     Active Substance: ALPRAZOLAM
     Indication: ANXIETY
     Dosage: 1 MILLIGRAM DAILY;
     Route: 048
     Dates: start: 20170101
  8. PARACETAMOL [Suspect]
     Active Substance: ACETAMINOPHEN
     Indication: PAIN
     Route: 048
     Dates: start: 20170123
  9. LASIX [Concomitant]
     Active Substance: FUROSEMIDE
     Dosage: 12.5 MILLIGRAM DAILY;
     Route: 048
     Dates: start: 20170101

REACTIONS (3)
  - Respiration abnormal [Recovered/Resolved]
  - Medication error [Recovered/Resolved]
  - Sopor [Recovered/Resolved]

NARRATIVE: CASE EVENT DATE: 20180123
